FAERS Safety Report 6982124-8 (Version None)
Quarter: 2010Q3

REPORT INFORMATION
  Report Type: 
  Country: None (occurrence: None)
  Receive Date: 20100914
  Receipt Date: 20091216
  Transmission Date: 20110219
  Serious: No
  Sender: FDA-Public Use
  Company Number: US-PFIZER INC-2009286669

PATIENT
  Sex: Female

DRUGS (2)
  1. LYRICA [Suspect]
     Indication: CONVULSION
     Dosage: 1800MG DAILY
  2. LYRICA [Suspect]
     Dosage: 2100MG DAILY

REACTIONS (1)
  - PAIN [None]
